FAERS Safety Report 9178029 (Version 1)
Quarter: 2013Q1

REPORT INFORMATION
  Report Type: Spontaneous
  Country: US (occurrence: US)
  Receive Date: 20130321
  Receipt Date: 20130321
  Transmission Date: 20140127
  Serious: Yes (Other)
  Sender: FDA-Public Use
  Company Number: US-009507513-1303USA010348

PATIENT
  Sex: Male

DRUGS (2)
  1. JANUVIA [Suspect]
     Dosage: UNK
     Route: 048
     Dates: start: 200811, end: 201012
  2. BYETTA [Suspect]
     Dosage: UNK
     Route: 048
     Dates: start: 200811, end: 201012

REACTIONS (2)
  - Pancreatic carcinoma [Unknown]
  - Pancreatitis acute [Unknown]
